FAERS Safety Report 7880121-1 (Version None)
Quarter: 2011Q4

REPORT INFORMATION
  Report Type: 
  Country: None (occurrence: None)
  Receive Date: 20111101
  Receipt Date: 20111021
  Transmission Date: 20120403
  Serious: Yes (Hospitalization)
  Sender: FDA-Public Use
  Company Number: US-BAYER-2011-029683

PATIENT
  Age: 42 Year
  Sex: Female
  Weight: 95 kg

DRUGS (6)
  1. ASCORBIC ACID [Concomitant]
     Dosage: UNK
     Dates: start: 19850101
  2. CEPHALEXIN [Concomitant]
     Indication: TOOTH INFECTION
     Dosage: UNK
     Dates: start: 20090201
  3. IBUPROFEN [Concomitant]
     Indication: HEADACHE
     Dosage: 800 MG, UNK
     Dates: start: 19850101
  4. YAZ [Suspect]
     Indication: MENSTRUATION IRREGULAR
     Dosage: UNK
     Dates: start: 20090127, end: 20090323
  5. LEXAPRO [Concomitant]
     Indication: DEPRESSION
     Dosage: 20 MG, UNK
     Dates: start: 19940101
  6. NITROFURANTOIN [Concomitant]
     Dosage: 100 MG, UNK
     Dates: start: 20090908

REACTIONS (17)
  - PLEURISY [None]
  - SENSATION OF HEAVINESS [None]
  - VOMITING [None]
  - EMOTIONAL DISTRESS [None]
  - ASTHENIA [None]
  - DIZZINESS [None]
  - PULMONARY EMBOLISM [None]
  - INJURY [None]
  - BACK PAIN [None]
  - CHEST PAIN [None]
  - FEAR [None]
  - DYSPNOEA [None]
  - PAIN [None]
  - FEELING ABNORMAL [None]
  - RENAL CYST [None]
  - PAIN IN EXTREMITY [None]
  - PULMONARY THROMBOSIS [None]
